FAERS Safety Report 6160652-5 (Version None)
Quarter: 2009Q2

REPORT INFORMATION
  Report Type: 
  Country: None (occurrence: None)
  Receive Date: 20090420
  Receipt Date: 20081125
  Transmission Date: 20091009
  Serious: Yes (Other)
  Sender: FDA-Public Use
  Company Number: US-PFIZER INC-2008001925

PATIENT
  Sex: Female

DRUGS (4)
  1. CHANTIX [Suspect]
     Indication: SMOKING CESSATION THERAPY
     Dosage: UNK
     Dates: start: 20070905
  2. SPIRIVA [Interacting]
     Dosage: UNK
     Dates: start: 20070901, end: 20070909
  3. CALCIUM [Interacting]
     Indication: OSTEOPOROSIS
  4. TRIAMTERENE AND HYDROCHLOROTHIAZIDE [Interacting]
     Indication: BLOOD PRESSURE DIASTOLIC ABNORMAL

REACTIONS (12)
  - ANOREXIA [None]
  - CHEST DISCOMFORT [None]
  - CONSTIPATION [None]
  - DRUG INTERACTION [None]
  - DYSPNOEA [None]
  - EATING DISORDER [None]
  - FEAR [None]
  - FEELING ABNORMAL [None]
  - FEELING JITTERY [None]
  - NAUSEA [None]
  - SALIVARY HYPERSECRETION [None]
  - SHOULDER OPERATION [None]
